FAERS Safety Report 6856998-5 (Version None)
Quarter: 2010Q3

REPORT INFORMATION
  Report Type: 
  Country: None (occurrence: None)
  Receive Date: 20100719
  Receipt Date: 20100709
  Transmission Date: 20110219
  Serious: Yes (Hospitalization)
  Sender: FDA-Public Use
  Company Number: A0869505A

PATIENT
  Age: 75 Year
  Sex: Female

DRUGS (16)
  1. ARIXTRA [Suspect]
     Indication: THROMBOSIS PROPHYLAXIS
     Dosage: 2.5MG PER DAY
     Route: 058
     Dates: start: 20091201
  2. PENICILLIN [Suspect]
     Indication: INFECTION
  3. LIPITOR [Concomitant]
  4. LEXAPRO [Concomitant]
  5. ADVAIR DISKUS 100/50 [Concomitant]
  6. PROVENTIL [Concomitant]
  7. CELEBREX [Concomitant]
  8. SINGULAIR [Concomitant]
  9. DILTIAZEM [Concomitant]
  10. ALLOPURINOL [Concomitant]
  11. TRIAMTERENE AND HYDROCHLOROTHIAZIDE [Concomitant]
  12. FERROUS SULFATE [Concomitant]
  13. PREDNISONE [Concomitant]
  14. XANAX [Concomitant]
  15. PERCOCET [Concomitant]
  16. COUMADIN [Concomitant]

REACTIONS (8)
  - DIARRHOEA [None]
  - HAEMORRHAGE [None]
  - KNEE OPERATION [None]
  - ORTHOSIS USER [None]
  - PYREXIA [None]
  - RENAL DISORDER [None]
  - STAPHYLOCOCCAL INFECTION [None]
  - WALKING AID USER [None]
